FAERS Safety Report 22289774 (Version 2)
Quarter: 2023Q2

REPORT INFORMATION
  Report Type: Spontaneous
  Country: FR (occurrence: FR)
  Receive Date: 20230505
  Receipt Date: 20230627
  Transmission Date: 20230721
  Serious: Yes (Hospitalization, Other)
  Sender: FDA-Public Use
  Company Number: FR-BAYER-2023A047216

PATIENT
  Sex: Male
  Weight: 98 kg

DRUGS (2)
  1. STIVARGA [Suspect]
     Active Substance: REGORAFENIB
     Indication: Colorectal cancer metastatic
     Dosage: 80 MG, QD
     Dates: start: 20230405, end: 20230412
  2. KARDEGIC [Concomitant]
     Active Substance: ASPIRIN DL-LYSINE
     Dosage: 75 MG, QD
     Route: 048
     Dates: start: 20230616

REACTIONS (4)
  - Hepatic encephalopathy [Not Recovered/Not Resolved]
  - Hospitalisation [None]
  - Hepatic cirrhosis [None]
  - Off label use [None]

NARRATIVE: CASE EVENT DATE: 20230405
